FAERS Safety Report 4620722-7 (Version None)
Quarter: 2005Q1

REPORT INFORMATION
  Report Type: 
  Country: None (occurrence: None)
  Receive Date: 20050325
  Receipt Date: 20050314
  Transmission Date: 20050727
  Serious: Yes (Other)
  Sender: FDA-Public Use
  Company Number: 2005045397

PATIENT
  Age: 50 Year
  Sex: Female
  Weight: 68.0396 kg

DRUGS (6)
  1. NEURONTIN [Suspect]
     Indication: NERVE COMPRESSION
     Dosage: (300 MG, 1 IN 1 D), ORAL
     Route: 048
     Dates: start: 20030901
  2. ESTRADIOL [Concomitant]
  3. VERAPAMIL [Concomitant]
  4. IBUPROFEN [Concomitant]
  5. LORAZEPAM [Concomitant]
  6. CYCLOBENZAPRINE HYDROCHLORIDE [Concomitant]

REACTIONS (6)
  - CONSTIPATION [None]
  - DRUG INEFFECTIVE [None]
  - FEELING ABNORMAL [None]
  - GENITAL BURNING SENSATION [None]
  - MUSCLE SPASMS [None]
  - PHARMACEUTICAL PRODUCT COMPLAINT [None]
